FAERS Safety Report 10183958 (Version 2)
Quarter: 2016Q1

REPORT INFORMATION
  Report Type: Spontaneous
  Country: GB (occurrence: GB)
  Receive Date: 20140520
  Receipt Date: 20160217
  Transmission Date: 20160525
  Serious: Yes (Disabling, Congenital Anomaly, Other)
  Sender: FDA-Public Use
  Company Number: GB-009507513-1405GBR009188

PATIENT
  Sex: Female
  Weight: 3.2 kg

DRUGS (11)
  1. ARIPIPRAZOLE. [Suspect]
     Active Substance: ARIPIPRAZOLE
     Indication: SCHIZOPHRENIA
     Dosage: 30 MG, QD
     Route: 064
  2. LAMOTRIGINE. [Suspect]
     Active Substance: LAMOTRIGINE
     Indication: SCHIZOPHRENIA
     Dosage: 300 MG, QD
     Route: 064
  3. VENTOLIN [Concomitant]
     Active Substance: ALBUTEROL SULFATE
     Route: 064
     Dates: start: 20131129
  4. NICORETTE [Concomitant]
     Active Substance: NICOTINE
     Route: 064
     Dates: start: 20130808
  5. PROCYCLIDINE HYDROCHLORIDE [Suspect]
     Active Substance: PROCYCLIDINE HYDROCHLORIDE
     Indication: SCHIZOPHRENIA
     Dosage: 5 MG, QD
     Route: 064
  6. CYCLIZINE [Concomitant]
     Active Substance: CYCLIZINE
     Route: 064
     Dates: start: 20130902
  7. CLARITHROMYCIN. [Concomitant]
     Active Substance: CLARITHROMYCIN
     Route: 064
     Dates: start: 20131129
  8. CEPHALEXIN. [Concomitant]
     Active Substance: CEPHALEXIN
     Indication: URINARY TRACT INFECTION
     Route: 064
     Dates: start: 20130827
  9. VITAMINS (UNSPECIFIED) [Concomitant]
     Active Substance: VITAMINS
     Indication: PREGNANCY
     Dosage: OVER THE COUNTER PREGNANCY VITAMINS AND MINERALS
     Route: 064
  10. MIRTAZAPINE. [Suspect]
     Active Substance: MIRTAZAPINE
     Indication: SCHIZOPHRENIA
     Dosage: 300 MG, QD
     Route: 064
  11. ZOPICLONE [Suspect]
     Active Substance: ZOPICLONE
     Indication: SCHIZOPHRENIA
     Dosage: 3.75 MG, QD
     Route: 064

REACTIONS (5)
  - Foetal exposure during pregnancy [Unknown]
  - Muscular weakness [Unknown]
  - Developmental hip dysplasia [Unknown]
  - Agitation neonatal [Unknown]
  - Selective eating disorder [Unknown]

NARRATIVE: CASE EVENT DATE: 201402
